FAERS Safety Report 7345323-1 (Version None)
Quarter: 2011Q1

REPORT INFORMATION
  Report Type: 
  Country: None (occurrence: None)
  Receive Date: 20110310
  Receipt Date: 20110214
  Transmission Date: 20110831
  Serious: No
  Sender: FDA-Public Use
  Company Number: US-B.I. PHARMACEUTICALS,INC./RIDGEFIELD-2010-BP-15391BP

PATIENT
  Age: 56 Year
  Sex: Male

DRUGS (10)
  1. ABILIFY [Concomitant]
     Indication: BIPOLAR DISORDER
     Dosage: 30 X 2; 20MG
     Route: 048
     Dates: start: 20101001
  2. PRADAXA [Suspect]
     Indication: ATRIAL FIBRILLATION
     Dosage: 300 MG
     Route: 048
     Dates: start: 20101212, end: 20101215
  3. DIOVAN [Concomitant]
     Indication: HYPERTENSION
     Route: 048
     Dates: start: 20080101
  4. ZOCOR [Concomitant]
     Indication: BLOOD CHOLESTEROL INCREASED
     Dosage: 20 MG
     Route: 048
     Dates: start: 20050101
  5. NORVASC [Concomitant]
     Indication: HYPERTENSION
     Route: 048
     Dates: start: 20080101
  6. ZETIA [Concomitant]
     Indication: BLOOD CHOLESTEROL INCREASED
     Dosage: 10 MG
     Route: 048
     Dates: start: 20050101
  7. LOPRESSOR [Concomitant]
     Indication: HYPERTENSION
     Route: 048
     Dates: start: 20080101
  8. LAMICTAL [Concomitant]
     Indication: MANIA
     Dosage: 100 MG
     Route: 048
     Dates: start: 20030101
  9. LASIX [Concomitant]
     Indication: CARDIAC FAILURE CONGESTIVE
     Dosage: 40 MG
     Route: 048
     Dates: start: 20101001
  10. DEPAKOTE [Concomitant]
     Dosage: 500 MG
     Route: 048

REACTIONS (4)
  - OEDEMA PERIPHERAL [None]
  - PAIN IN EXTREMITY [None]
  - INTERNATIONAL NORMALISED RATIO DECREASED [None]
  - JOINT SWELLING [None]
